FAERS Safety Report 10356296 (Version 2)
Quarter: 2014Q3

REPORT INFORMATION
  Report Type: Spontaneous
  Country: FR (occurrence: FR)
  Receive Date: 20140801
  Receipt Date: 20140912
  Transmission Date: 20150326
  Serious: Yes (Disabling)
  Sender: FDA-Public Use
  Company Number: FR-AMGEN-FRASP2014058264

PATIENT
  Age: 73 Year
  Sex: Female
  Weight: 59 kg

DRUGS (4)
  1. METHOTREXATE (METHOTREXATE SODIUM) [Suspect]
     Active Substance: METHOTREXATE SODIUM
     Indication: PRODUCT USED FOR UNKNOWN INDICATION
     Dosage: 17.5 MG, WEEKLY
     Route: 048
     Dates: start: 2014
  2. SPECIAFOLDINE [Concomitant]
     Active Substance: FOLIC ACID
     Dosage: 4 DF, WEEKLY
  3. ENBREL [Suspect]
     Active Substance: ETANERCEPT
     Indication: PRODUCT USED FOR UNKNOWN INDICATION
     Dosage: 50 MG, WEEKLY
     Route: 058
     Dates: start: 201108
  4. SEROPRAM                           /00582602/ [Concomitant]
     Dosage: UNK

REACTIONS (5)
  - Androgenetic alopecia [Not Recovered/Not Resolved]
  - Product substitution issue [Unknown]
  - Alopecia [Not Recovered/Not Resolved]
  - Product quality issue [Unknown]
  - Hair disorder [Not Recovered/Not Resolved]

NARRATIVE: CASE EVENT DATE: 2014
